FAERS Safety Report 5883713-4 (Version None)
Quarter: 2008Q3

REPORT INFORMATION
  Report Type: 
  Country: None (occurrence: None)
  Receive Date: 20080912
  Receipt Date: 20080912
  Transmission Date: 20090109
  Serious: Yes (Hospitalization)
  Sender: FDA-Public Use
  Company Number: None

PATIENT
  Age: 38 Year
  Sex: Female
  Weight: 76.8 kg

DRUGS (1)
  1. LOESTRIN FE 1.5/30 [Suspect]
     Indication: ENDOMETRIOSIS
     Dosage: 1 TAB DAILY PO
     Route: 048

REACTIONS (7)
  - CEREBRAL ARTERY OCCLUSION [None]
  - DYSARTHRIA [None]
  - FACIAL PALSY [None]
  - HYPOAESTHESIA [None]
  - MUSCULAR WEAKNESS [None]
  - PARAESTHESIA [None]
  - SPEECH DISORDER [None]
